FAERS Safety Report 5391612-X (Version None)
Quarter: 2007Q3

REPORT INFORMATION
  Report Type: 
  Country: None (occurrence: None)
  Receive Date: 20070719
  Receipt Date: 20070710
  Transmission Date: 20080115
  Serious: Yes (Other)
  Sender: FDA-Public Use
  Company Number: US-PFIZER INC-2007057516

PATIENT
  Sex: Female

DRUGS (5)
  1. CHANTIX [Suspect]
  2. CYMBALTA [Concomitant]
  3. ZANAFLEX [Concomitant]
  4. LORTAB [Concomitant]
  5. ALL OTHER THERAPEUTIC PRODUCTS [Concomitant]

REACTIONS (3)
  - MUSCLE RIGIDITY [None]
  - MUSCLE SPASMS [None]
  - NAUSEA [None]
